FAERS Safety Report 13782275 (Version 1)
Quarter: 2017Q3

REPORT INFORMATION
  Report Type: Spontaneous
  Country: US (occurrence: US)
  Receive Date: 20170724
  Receipt Date: 20170724
  Transmission Date: 20171127
  Serious: No
  Sender: FDA-Public Use
  Company Number: US-IPSEN BIOPHARMACEUTICALS, INC.-2016-05883

PATIENT
  Age: 56 Year
  Sex: Female
  Weight: 53 kg

DRUGS (9)
  1. SOMATULINE DEPOT [Suspect]
     Active Substance: LANREOTIDE ACETATE
     Indication: NEUROENDOCRINE TUMOUR
     Dosage: 120 MG
     Route: 058
     Dates: start: 201606
  2. CITRICAL [Concomitant]
     Active Substance: CALCIUM CITRATE
     Dosage: 2 TABLETS
  3. POTASSIUM [Concomitant]
     Active Substance: POTASSIUM
  4. HYDROCHLORTHIAZIDE [Concomitant]
     Active Substance: HYDROCHLOROTHIAZIDE
  5. ALIGN [Concomitant]
     Active Substance: BIFIDOBACTERIUM LONGUM SUBSP. INFANTIS
  6. EPLERENONE. [Concomitant]
     Active Substance: EPLERENONE
     Indication: HYPOALDOSTERONISM
  7. SANDOSTATIN [Concomitant]
     Active Substance: OCTREOTIDE ACETATE
     Indication: NEUROENDOCRINE TUMOUR
     Route: 058
     Dates: start: 2016, end: 201607
  8. DOCULAX [Concomitant]
  9. ALIVE MULTIVITAMIN [Concomitant]

REACTIONS (4)
  - Drug effect decreased [Unknown]
  - Headache [Recovered/Resolved]
  - Thyroid function test abnormal [Not Recovered/Not Resolved]
  - Headache [Not Recovered/Not Resolved]

NARRATIVE: CASE EVENT DATE: 201606
